FAERS Safety Report 15640844 (Version 1)
Quarter: 2018Q4

REPORT INFORMATION
  Report Type: Spontaneous
  Country: US (occurrence: US)
  Receive Date: 20181120
  Receipt Date: 20181120
  Transmission Date: 20190205
  Serious: Yes (Other)
  Sender: FDA-Public Use
  Company Number: US-ELI_LILLY_AND_COMPANY-US201811004317

PATIENT
  Age: 61 Year
  Sex: Male

DRUGS (6)
  1. DECADRON [DEXAMETHASONE] [Concomitant]
     Indication: PREMEDICATION
     Dosage: UNK, UNKNOWN
     Route: 065
  2. CYRAMZA [Suspect]
     Active Substance: RAMUCIRUMAB
     Indication: LUNG CANCER METASTATIC
     Dosage: UNK, CYCLICAL
     Route: 042
     Dates: start: 20181108, end: 20181108
  3. ALOXI [Concomitant]
     Active Substance: PALONOSETRON HYDROCHLORIDE
     Indication: PREMEDICATION
     Dosage: UNK, UNKNOWN
     Route: 065
  4. TAXOTERE [Concomitant]
     Active Substance: DOCETAXEL
     Indication: LUNG CANCER METASTATIC
  5. BENADRYL [Concomitant]
     Active Substance: DIPHENHYDRAMINE HYDROCHLORIDE
     Indication: PREMEDICATION
     Route: 065
  6. PEPCID [FAMOTIDINE] [Concomitant]
     Indication: PREMEDICATION
     Dosage: UNK, UNKNOWN
     Route: 065

REACTIONS (3)
  - Seizure [Unknown]
  - Hyperhidrosis [Unknown]
  - Hypotension [Unknown]

NARRATIVE: CASE EVENT DATE: 20181108
